FAERS Safety Report 7953291-4 (Version None)
Quarter: 2011Q4

REPORT INFORMATION
  Report Type: 
  Country: None (occurrence: None)
  Receive Date: 20111202
  Receipt Date: 20111118
  Transmission Date: 20120403
  Serious: Yes (Life-Threatening, Hospitalization)
  Sender: FDA-Public Use
  Company Number: JP-MYLANLABS-2011S1024311

PATIENT
  Age: 70 Year
  Sex: Male

DRUGS (10)
  1. RAMOSETRON [Concomitant]
     Route: 048
  2. CEFEPIME [Concomitant]
     Route: 042
  3. CYTARABINE [Concomitant]
     Indication: ACUTE MYELOID LEUKAEMIA
     Route: 058
  4. VORICONAZOLE [Suspect]
     Indication: BRONCHOPULMONARY ASPERGILLOSIS
     Route: 048
  5. MAGNESIUM OXIDE [Concomitant]
     Route: 048
  6. LANSOPRAZOLE [Interacting]
     Route: 048
  7. SODIUM ALGINATE [Concomitant]
     Route: 048
  8. SUCRALFATE [Concomitant]
     Route: 048
  9. ACLARUBICIN [Concomitant]
     Indication: ACUTE MYELOID LEUKAEMIA
     Route: 042
  10. ACETAMINOPHEN [Concomitant]
     Dosage: SINGLE DOSES OF 400MG
     Route: 048

REACTIONS (2)
  - ARRHYTHMIA [None]
  - DRUG INTERACTION [None]
